FAERS Safety Report 17015234 (Version 1)
Quarter: 2019Q4

REPORT INFORMATION
  Report Type: Report from Study
  Country: IT (occurrence: IT)
  Receive Date: 20191111
  Receipt Date: 20191111
  Transmission Date: 20200122
  Serious: Yes (Hospitalization)
  Sender: FDA-Public Use
  Company Number: IT-TEVA-2019-IT-1135859

PATIENT
  Age: 82 Year
  Sex: Female

DRUGS (11)
  1. ATORVASTATIN [Concomitant]
     Active Substance: ATORVASTATIN
     Dosage: 20 MG
  2. FOLINA [Concomitant]
  3. TORASEMIDE [Concomitant]
     Active Substance: TORSEMIDE
  4. BISOPROLOL FUMARATE. [Suspect]
     Active Substance: BISOPROLOL FUMARATE
     Indication: MYOCARDIAL ISCHAEMIA
     Dosage: 5 MG PER DAY
     Route: 048
     Dates: start: 20180101
  5. VERAPAMIL [Suspect]
     Active Substance: VERAPAMIL HYDROCHLORIDE
     Indication: MYOCARDIAL ISCHAEMIA
     Dosage: 240 MG PER DAY
     Route: 048
     Dates: start: 20180101, end: 20190917
  6. ALLOPURINOL. [Concomitant]
     Active Substance: ALLOPURINOL
  7. RANEXA [Concomitant]
     Active Substance: RANOLAZINE
     Dosage: 750 MG
  8. CLOPIDOGREL [Concomitant]
     Active Substance: CLOPIDOGREL BISULFATE
     Dosage: 75 MG
  9. LASITONE 25 MG + 37 MG CAPSULE RIGIDE [Concomitant]
     Active Substance: FUROSEMIDE\SPIRONOLACTONE
     Dosage: CAPSULE RIGIDE
  10. PREGABALIN. [Concomitant]
     Active Substance: PREGABALIN
  11. ESOMEPRAZOLE SODIUM. [Concomitant]
     Active Substance: ESOMEPRAZOLE SODIUM

REACTIONS (2)
  - Electrocardiogram QT prolonged [Recovering/Resolving]
  - Bradycardia [Recovering/Resolving]

NARRATIVE: CASE EVENT DATE: 20190917
